FAERS Safety Report 6979712-1 (Version None)
Quarter: 2010Q3

REPORT INFORMATION
  Report Type: 
  Country: None (occurrence: None)
  Receive Date: 20100913
  Receipt Date: 20100831
  Transmission Date: 20110219
  Serious: Yes (Hospitalization)
  Sender: FDA-Public Use
  Company Number: US-ELI_LILLY_AND_COMPANY-US201006005774

PATIENT
  Sex: Female

DRUGS (16)
  1. FORTEO [Suspect]
     Indication: OSTEOPOROSIS
     Dosage: 20 UG, DAILY (1/D)
  2. FORTEO [Suspect]
     Dosage: 20 UG, DAILY (1/D)
  3. XANAX [Concomitant]
     Dosage: 50 MG, DAILY (1/D)
  4. AMITRIPTYLINE HCL [Concomitant]
     Dosage: 50 MG, 2/D
  5. LASIX [Concomitant]
     Dosage: 40 MG, DAILY (1/D)
  6. LYRICA [Concomitant]
     Dosage: 75 MG, 2/D
  7. TOPROL-XL [Concomitant]
     Dosage: 50 MG, DAILY (1/D)
  8. NEXIUM [Concomitant]
     Dosage: 40 MG, DAILY (1/D)
  9. SALAGEN [Concomitant]
     Dosage: 5 MG, 4/D
  10. POTASSIUM CHLORIDE [Concomitant]
     Dosage: 20 MG, DAILY (1/D)
  11. TOPAMAX [Concomitant]
     Dosage: 50 MG, DAILY (1/D)
  12. MILNACIPRAN [Concomitant]
     Dosage: 50 MG, DAILY (1/D)
  13. ZOCOR [Concomitant]
     Dosage: 20 MG, DAILY (1/D)
  14. VITAMIN D [Concomitant]
     Dosage: 50000 IU, WEEKLY (1/W)
  15. MULTI-VITAMIN [Concomitant]
     Dosage: UNK, DAILY (1/D)
  16. CALCIUM [Concomitant]
     Dosage: 600 MG, 3/D

REACTIONS (5)
  - ABDOMINAL DISTENSION [None]
  - BLISTER [None]
  - INJECTION SITE PAIN [None]
  - SYSTEMIC LUPUS ERYTHEMATOSUS [None]
  - WAIST CIRCUMFERENCE INCREASED [None]
